FAERS Safety Report 6466870-0 (Version None)
Quarter: 2009Q4

REPORT INFORMATION
  Report Type: 
  Country: None (occurrence: None)
  Receive Date: 20091202
  Receipt Date: 20091019
  Transmission Date: 20100525
  Serious: Yes (Other)
  Sender: FDA-Public Use
  Company Number: PL-PFIZER INC-2009244881

PATIENT
  Age: 12 Year
  Sex: Male

DRUGS (7)
  1. NELFINAVIR MESILATE [Suspect]
     Indication: ANTIRETROVIRAL THERAPY
     Dosage: UNK
     Route: 065
     Dates: end: 20060101
  2. DIDANOSINE [Suspect]
     Indication: ANTIRETROVIRAL THERAPY
     Dosage: UNK
     Route: 065
     Dates: end: 20060101
  3. STAVUDINE [Suspect]
     Indication: ANTIRETROVIRAL THERAPY
     Dosage: UNK
     Route: 065
     Dates: end: 20060101
  4. TENOFOVIR [Suspect]
     Indication: ANTIRETROVIRAL THERAPY
     Route: 065
  5. LAMIVUDINE [Suspect]
     Indication: ANTIRETROVIRAL THERAPY
     Dosage: UNK
     Route: 065
     Dates: start: 19980101
  6. EFAVIRENZ [Suspect]
     Indication: ANTIRETROVIRAL THERAPY
  7. EMTRICITABINE [Suspect]

REACTIONS (1)
  - LIPODYSTROPHY ACQUIRED [None]
